FAERS Safety Report 10939644 (Version 7)
Quarter: 2017Q1

REPORT INFORMATION
  Report Type: Spontaneous
  Country: US (occurrence: US)
  Receive Date: 20150322
  Receipt Date: 20170221
  Transmission Date: 20170428
  Serious: Yes (Other)
  Sender: FDA-Public Use
  Company Number: US-JNJFOC-20140820986

PATIENT
  Sex: Male

DRUGS (7)
  1. RISPERIDONE. [Suspect]
     Active Substance: RISPERIDONE
     Indication: PRODUCT USED FOR UNKNOWN INDICATION
     Route: 048
  2. RISPERDAL [Suspect]
     Active Substance: RISPERIDONE
     Indication: AUTISM SPECTRUM DISORDER
     Route: 048
     Dates: start: 20101209, end: 20121030
  3. RISPERDAL [Suspect]
     Active Substance: RISPERIDONE
     Indication: AUTISM SPECTRUM DISORDER
     Route: 048
     Dates: start: 20100821, end: 20110220
  4. RISPERDAL [Suspect]
     Active Substance: RISPERIDONE
     Indication: AFFECTIVE DISORDER
     Route: 048
     Dates: start: 20101209, end: 20121030
  5. RISPERDAL [Suspect]
     Active Substance: RISPERIDONE
     Indication: AFFECTIVE DISORDER
     Route: 048
     Dates: start: 20100821, end: 20110220
  6. RISPERIDONE. [Suspect]
     Active Substance: RISPERIDONE
     Indication: PRODUCT USED FOR UNKNOWN INDICATION
     Route: 048
  7. RIPSERIDONE [Suspect]
     Active Substance: RISPERIDONE
     Indication: PRODUCT USED FOR UNKNOWN INDICATION
     Route: 048

REACTIONS (3)
  - Obesity [Unknown]
  - Hyperprolactinaemia [Unknown]
  - Gynaecomastia [Unknown]

NARRATIVE: CASE EVENT DATE: 2010
